FAERS Safety Report 5618938-6 (Version None)
Quarter: 2008Q1

REPORT INFORMATION
  Report Type: 
  Country: None (occurrence: None)
  Receive Date: 20080207
  Receipt Date: 20080109
  Transmission Date: 20080703
  Serious: No
  Sender: FDA-Public Use
  Company Number: US-BAYER-200810835NA

PATIENT
  Sex: Female

DRUGS (2)
  1. ADALAT CC [Suspect]
     Indication: DRUG USE FOR UNKNOWN INDICATION
  2. ADALAT CC [Suspect]

REACTIONS (2)
  - BLOOD PRESSURE ABNORMAL [None]
  - OEDEMA PERIPHERAL [None]
